FAERS Safety Report 22064131 (Version 1)
Quarter: 2023Q1

REPORT INFORMATION
  Report Type: Spontaneous
  Country: PL (occurrence: PL)
  Receive Date: 20230306
  Receipt Date: 20230306
  Transmission Date: 20230417
  Serious: Yes (Other)
  Sender: FDA-Public Use
  Company Number: None

PATIENT
  Age: 20 Year
  Sex: Female

DRUGS (10)
  1. BORTEZOMIB [Suspect]
     Active Substance: BORTEZOMIB
     Indication: Product used for unknown indication
     Dosage: 0.7 MG/M2, UNK
  2. DASATINIB [Suspect]
     Active Substance: DASATINIB
     Indication: Acute lymphocytic leukaemia recurrent
  3. DEXAMETHASONE [Suspect]
     Active Substance: DEXAMETHASONE
     Indication: Acute lymphocytic leukaemia recurrent
     Dosage: DOSE: 10-20MG; ADMINISTERED FOR TWO DAYS PER CYCLE
  4. ASPARAGINASE [Suspect]
     Active Substance: ASPARAGINASE
     Indication: Acute lymphocytic leukaemia recurrent
  5. MITOXANTRONE [Suspect]
     Active Substance: MITOXANTRONE HYDROCHLORIDE
     Indication: Acute lymphocytic leukaemia recurrent
  6. NILOTINIB [Suspect]
     Active Substance: NILOTINIB
     Indication: Acute lymphocytic leukaemia recurrent
     Dosage: 400 MG, QD
  7. PEG/L-ASPARAGINASE [Suspect]
     Active Substance: PEGASPARGASE
     Indication: Acute lymphocytic leukaemia recurrent
     Dosage: 1000 UNITS/M2 ; DOSE ADMINISTERED ONCE IN EVERY CYCLE
  8. VINBLASTINE [Suspect]
     Active Substance: VINBLASTINE
     Indication: Acute lymphocytic leukaemia recurrent
  9. BORTEZOMIB [Suspect]
     Active Substance: BORTEZOMIB
     Indication: Acute lymphocytic leukaemia recurrent
     Dosage: ADMINISTERED ON DAYS 1,4,8 AND 11 OF EVERY CYCLE
  10. NILOTINIB [Suspect]
     Active Substance: NILOTINIB
     Indication: Acute lymphocytic leukaemia recurrent

REACTIONS (6)
  - Left ventricular failure [Unknown]
  - Hepatotoxicity [Unknown]
  - Haematotoxicity [Unknown]
  - Bradycardia [Unknown]
  - Neurotoxicity [Unknown]
  - Gastrointestinal haemorrhage [Unknown]
